FAERS Safety Report 4382181-1 (Version None)
Quarter: 2004Q2

REPORT INFORMATION
  Report Type: 
  Country: None (occurrence: None)
  Receive Date: 20040618
  Receipt Date: 20040618
  Transmission Date: 20050107
  Serious: No
  Sender: FDA-Public Use
  Company Number: None

PATIENT
  Age: 73 Year
  Sex: Female

DRUGS (1)
  1. IRON DEXTRAN [Suspect]
     Dates: start: 20040602, end: 20040617

REACTIONS (2)
  - COMA [None]
  - HYPOTENSION [None]
